FAERS Safety Report 4710561-0 (Version None)
Quarter: 2005Q3

REPORT INFORMATION
  Report Type: 
  Country: None (occurrence: None)
  Receive Date: 20050707
  Receipt Date: 20050621
  Transmission Date: 20060218
  Serious: Yes (Hospitalization)
  Sender: FDA-Public Use
  Company Number: FR_050606673

PATIENT
  Age: 79 Year
  Sex: Female
  Weight: 31.7518 kg

DRUGS (9)
  1. PROZAC [Suspect]
     Indication: DEPRESSION
     Dosage: 20 MG/ 1 DAY
     Dates: start: 20040213
  2. IXPRIM [Concomitant]
  3. PREVISCAN [Concomitant]
  4. LASILIX (FUROSEMIDE  /00032601/) [Concomitant]
  5. PREDNISOLONE [Concomitant]
  6. IMOVANE (ZOPICLONE) [Concomitant]
  7. ACTONEL (RISENDRONATE SODIUM) [Concomitant]
  8. HEMIGOXINE (NATIVELLE (DIGOXIN  00017701/) [Concomitant]
  9. OMEPRAZOLE [Concomitant]

REACTIONS (13)
  - BLOOD POTASSIUM DECREASED [None]
  - DRUG INTERACTION [None]
  - GASTROINTESTINAL HAEMORRHAGE [None]
  - HAEMATOMA [None]
  - HAEMOGLOBIN DECREASED [None]
  - HYPERLACTACIDAEMIA [None]
  - INFECTION [None]
  - INTERNATIONAL NORMALISED RATIO INCREASED [None]
  - LOSS OF CONSCIOUSNESS [None]
  - LUNG DISORDER [None]
  - MALAISE [None]
  - PROTHROMBIN TIME SHORTENED [None]
  - RENAL FAILURE [None]
